FAERS Safety Report 9391865 (Version 1)
Quarter: 2013Q3

REPORT INFORMATION
  Report Type: Spontaneous
  Country: US (occurrence: None)
  Receive Date: 20130705
  Receipt Date: 20130705
  Transmission Date: 20140515
  Serious: Yes (Hospitalization)
  Sender: FDA-Public Use
  Company Number: 2013-253

PATIENT
  Age: 34 Year
  Sex: Female

DRUGS (2)
  1. PRIALT (ZICONOTIDE) INTRATHECAL INFUSION [Suspect]
     Indication: COMPLEX REGIONAL PAIN SYNDROME
     Dosage: ONCE/HOUR
     Route: 037
  2. BACLOFEN (BACLOFEN) INJECTION [Suspect]
     Indication: MUSCLE SPASTICITY
     Dosage: ONCE/HOUR
     Route: 037

REACTIONS (5)
  - Psychotic disorder [None]
  - Blood creatine phosphokinase increased [None]
  - Confusional state [None]
  - Pain [None]
  - Liver function test abnormal [None]
